FAERS Safety Report 22881770 (Version 3)
Quarter: 2024Q3

REPORT INFORMATION
  Report Type: Report from Study
  Country: US (occurrence: US)
  Receive Date: 20230830
  Receipt Date: 20240816
  Transmission Date: 20241017
  Serious: No
  Sender: NOVARTIS
  Company Number: US-SANDOZ-SDZ2023US019958

PATIENT
  Sex: Male
  Weight: 97.52 kg

DRUGS (7)
  1. METHOTREXATE [Suspect]
     Active Substance: METHOTREXATE
     Indication: Psoriasis
     Dosage: UNK
     Route: 065
  2. COSENTYX [Suspect]
     Active Substance: SECUKINUMAB
     Indication: Psoriasis
     Dosage: 300 MG, Q4W
     Route: 058
     Dates: end: 202210
  3. TRIAMCINOLONE [Suspect]
     Active Substance: TRIAMCINOLONE
     Indication: Psoriasis
     Dosage: UNK
     Route: 065
  4. CALCIPOTRIENE [Suspect]
     Active Substance: CALCIPOTRIENE
     Indication: Psoriasis
     Dosage: UNK
     Route: 065
  5. HYDROCORTISONE [Suspect]
     Active Substance: HYDROCORTISONE\HYDROCORTISONE ACETATE
     Indication: Psoriasis
     Dosage: UNK
     Route: 065
  6. TAZAROTENE [Suspect]
     Active Substance: TAZAROTENE
     Indication: Psoriasis
     Dosage: UNK
     Route: 065
  7. CALCIPOTRIENE [Suspect]
     Active Substance: CALCIPOTRIENE
     Indication: Psoriasis
     Dosage: UNK
     Route: 065

REACTIONS (6)
  - Psoriasis [Unknown]
  - Drug ineffective [Unknown]
  - Erythema [Unknown]
  - Skin exfoliation [Unknown]
  - Pruritus [Unknown]
  - Skin haemorrhage [Unknown]
